FAERS Safety Report 25120277 (Version 1)
Quarter: 2025Q1

REPORT INFORMATION
  Report Type: Spontaneous
  Country: US (occurrence: None)
  Receive Date: 20250325
  Receipt Date: 20250325
  Transmission Date: 20250408
  Serious: Yes (Hospitalization)
  Sender: FDA-CTU
  Company Number: None

PATIENT
  Age: 3 Year
  Sex: Male
  Weight: 11.1 kg

DRUGS (4)
  1. MERCAPTOPURINE [Suspect]
     Active Substance: MERCAPTOPURINE
  2. METHOTREXATE [Suspect]
     Active Substance: METHOTREXATE
  3. PREDNISONE [Suspect]
     Active Substance: PREDNISONE
  4. VINCRISTINE SULFATE [Suspect]
     Active Substance: VINCRISTINE SULFATE

REACTIONS (6)
  - Sepsis [None]
  - Diarrhoea [None]
  - Blood culture positive [None]
  - Pneumococcal infection [None]
  - Culture stool positive [None]
  - Clostridium difficile infection [None]

NARRATIVE: CASE EVENT DATE: 20250307
